FAERS Safety Report 6024406-2 (Version None)
Quarter: 2008Q4

REPORT INFORMATION
  Report Type: 
  Country: None (occurrence: None)
  Receive Date: 20081224
  Receipt Date: 20081215
  Transmission Date: 20090506
  Serious: Yes (Other)
  Sender: FDA-Public Use
  Company Number: 2008-03331

PATIENT
  Age: 75 Year
  Sex: Male

DRUGS (8)
  1. VELCADE [Suspect]
     Indication: MULTIPLE MYELOMA
     Dosage: 2.6 MG, INTRAVENOUS
     Route: 042
     Dates: start: 20080804
  2. ACYCLOVIR [Concomitant]
  3. FOLIC ACID [Concomitant]
  4. VITAMIN B12 (CYCANOCOBALAMIN) [Concomitant]
  5. METOCLOPRAMIDE [Concomitant]
  6. WARFARIN SODIUM [Concomitant]
  7. BENDROFLUMETHIAZIDE (BENDROFLUMETHIAZIDE) [Concomitant]
  8. LEVOTHYROXINE SODIUM [Concomitant]

REACTIONS (3)
  - AMNESIA [None]
  - CONFUSIONAL STATE [None]
  - MENTAL DISORDER [None]
